FAERS Safety Report 5485456-8 (Version None)
Quarter: 2007Q4

REPORT INFORMATION
  Report Type: 
  Country: None (occurrence: None)
  Receive Date: 20071010
  Receipt Date: 20071010
  Transmission Date: 20080405
  Serious: Yes (Other)
  Sender: FDA-Public Use
  Company Number: None

PATIENT
  Sex: Female

DRUGS (1)
  1. PROMETHAZINE [Suspect]
     Indication: NAUSEA
     Dosage: 12.5 OR 25 MG  ONCE IM
     Route: 030
     Dates: start: 20070601, end: 20070731

REACTIONS (4)
  - ERYTHEMA [None]
  - INFLAMMATION [None]
  - NEUROPATHY [None]
  - SKIN DYSTROPHY [None]
